FAERS Safety Report 4361163-X (Version None)
Quarter: 2004Q2

REPORT INFORMATION
  Report Type: 
  Country: None (occurrence: None)
  Receive Date: 20040507
  Receipt Date: 20031029
  Transmission Date: 20050107
  Serious: Yes (Hospitalization)
  Sender: FDA-Public Use
  Company Number: PHEH2003US09932

PATIENT
  Age: 55 Year
  Sex: Female

DRUGS (8)
  1. TEGRETOL [Suspect]
     Indication: CONVULSION
     Dosage: ORAL
     Route: 048
     Dates: start: 19900101, end: 19990701
  2. SYNTHROID [Concomitant]
  3. ATACAND [Concomitant]
  4. KLONOPIN [Concomitant]
  5. LEXAPRO /USA/ ESCITALOPRAM [Concomitant]
  6. TIAZAC [Concomitant]
  7. SEROQUEL [Concomitant]
  8. MULTIPLE PSYCHIATRIC MEDICATIONS [Concomitant]

REACTIONS (7)
  - BLOOD PRESSURE INCREASED [None]
  - BLOOD SODIUM DECREASED [None]
  - CARDIAC DISORDER [None]
  - CONVULSION [None]
  - DIFFICULTY IN WALKING [None]
  - DYSARTHRIA [None]
  - VISION BLURRED [None]
